FAERS Safety Report 7751795-0 (Version None)
Quarter: 2011Q3

REPORT INFORMATION
  Report Type: 
  Country: None (occurrence: None)
  Receive Date: 20110915
  Receipt Date: 20110912
  Transmission Date: 20111222
  Serious: Yes (Other)
  Sender: FDA-Public Use
  Company Number: US-BRISTOL-MYERS SQUIBB COMPANY-16051963

PATIENT
  Age: 53 Year
  Sex: Female
  Weight: 86 kg

DRUGS (5)
  1. PRAVASTATIN SODIUM [Suspect]
     Indication: BLOOD CHOLESTEROL ABNORMAL
  2. FOLIC ACID [Concomitant]
  3. DETROL LA [Suspect]
     Indication: INCONTINENCE
     Dosage: CAPSULES
     Route: 048
  4. NEURONTIN [Suspect]
     Indication: NEURALGIA
  5. LYRICA [Suspect]
     Indication: NEURALGIA

REACTIONS (1)
  - SPINAL OPERATION [None]
